FAERS Safety Report 6211704-2 (Version None)
Quarter: 2009Q2

REPORT INFORMATION
  Report Type: 
  Country: None (occurrence: None)
  Receive Date: 20090602
  Receipt Date: 20090526
  Transmission Date: 20091009
  Serious: Yes (Other)
  Sender: FDA-Public Use
  Company Number: B0576684A

PATIENT
  Sex: Female

DRUGS (1)
  1. AUGMENTIN '125' [Suspect]
     Indication: BRONCHITIS
     Dosage: 2G PER DAY
     Route: 048
     Dates: start: 20090413, end: 20090420

REACTIONS (3)
  - ANGIOEDEMA [None]
  - EYE OEDEMA [None]
  - OROPHARYNGEAL DISCOMFORT [None]
